FAERS Safety Report 4622458-5 (Version None)
Quarter: 2005Q1

REPORT INFORMATION
  Report Type: 
  Country: None (occurrence: None)
  Receive Date: 20050324
  Receipt Date: 20050324
  Transmission Date: 20050727
  Serious: Yes (Other)
  Sender: FDA-Public Use
  Company Number: None

PATIENT
  Age: 26 Year
  Sex: Female

DRUGS (2)
  1. MURINE EAR WAX REMOVAL SYSTEM (CARBAMIDE PEROXIDE 6.5%) AND BULB SYRIN [Suspect]
     Dosage: 5 DROPS IN RIGHT EAR [ONLY ONCE]
     Route: 014
     Dates: start: 20030414
  2. MURINE EAR WAX REMOVAL SYSTEM (CARBAMIDE PEROXIDE 6.5%) AND BULB SYRIN [Suspect]

REACTIONS (4)
  - EAR PAIN [None]
  - INFLAMMATION [None]
  - INSTILLATION SITE ABNORMAL SENSATION [None]
  - INSTILLATION SITE PAIN [None]
